FAERS Safety Report 5524331-7 (Version None)
Quarter: 2007Q4

REPORT INFORMATION
  Report Type: 
  Country: None (occurrence: None)
  Receive Date: 20071121
  Receipt Date: 20071112
  Transmission Date: 20080405
  Serious: Yes (Other)
  Sender: FDA-Public Use
  Company Number: FR-PFIZER INC-2007095762

PATIENT
  Sex: Male

DRUGS (9)
  1. LYRICA [Suspect]
     Route: 048
     Dates: start: 20070818, end: 20070902
  2. INDAPAMIDE [Suspect]
     Route: 048
  3. RISPERDAL [Suspect]
     Route: 048
  4. OXAZEPAM [Suspect]
     Route: 048
  5. MIRTAZAPINE [Concomitant]
     Route: 048
  6. EFFEXOR [Concomitant]
     Route: 048
  7. FORLAX [Concomitant]
  8. DIFFU K [Concomitant]
  9. PANTOPRAZOLE SODIUM [Concomitant]

REACTIONS (2)
  - CONVULSION [None]
  - HYPOKALAEMIA [None]
